FAERS Safety Report 4565442-2 (Version None)
Quarter: 2005Q1

REPORT INFORMATION
  Report Type: 
  Country: None (occurrence: None)
  Receive Date: 20050131
  Receipt Date: 20050119
  Transmission Date: 20050727
  Serious: Yes (Hospitalization)
  Sender: FDA-Public Use
  Company Number: US-MERCK-0501USA03382

PATIENT
  Age: 78 Year
  Sex: Female
  Weight: 62 kg

DRUGS (8)
  1. VIOXX [Suspect]
     Indication: ARTHRALGIA
     Route: 048
     Dates: start: 20020918
  2. PLAVIX [Concomitant]
     Route: 065
  3. TENORMIN [Concomitant]
     Route: 065
  4. NORVASC [Concomitant]
     Route: 065
  5. ZANTAC [Concomitant]
     Route: 065
  6. LEXAPRO [Concomitant]
     Route: 065
  7. TEGRETOL [Concomitant]
     Route: 065
  8. LIPITOR [Concomitant]
     Route: 065

REACTIONS (12)
  - ACUTE PRERENAL FAILURE [None]
  - BRADYCARDIA [None]
  - CEREBROVASCULAR ACCIDENT [None]
  - CONTUSION [None]
  - DIARRHOEA [None]
  - FALL [None]
  - HYPERTENSION [None]
  - HYPOTHYROIDISM [None]
  - MAJOR DEPRESSION [None]
  - PEPTIC ULCER [None]
  - REFRACTORY ANAEMIA [None]
  - TRANSIENT ISCHAEMIC ATTACK [None]
